FAERS Safety Report 8489491-7 (Version None)
Quarter: 2012Q3

REPORT INFORMATION
  Report Type: 
  Country: None (occurrence: None)
  Receive Date: 20120705
  Receipt Date: 20120622
  Transmission Date: 20120928
  Serious: Yes (Hospitalization)
  Sender: FDA-Public Use
  Company Number: FR-NAPPMUNDI-GBR-2012-0010880

PATIENT
  Sex: Female

DRUGS (18)
  1. OXYCONTIN [Suspect]
     Indication: PAIN
     Dosage: UNK
     Route: 065
     Dates: start: 20120424
  2. KETOPROFEN [Concomitant]
     Dosage: UNK
     Dates: start: 20120424
  3. LYRICA [Concomitant]
     Dosage: UNK
     Dates: start: 20120424
  4. PRADAXA [Concomitant]
     Dosage: UNK
     Dates: start: 20120425
  5. PIASCLEDINE                        /00809501/ [Concomitant]
  6. VANCOMYCIN [Concomitant]
     Indication: INFECTION
     Dosage: UNK
     Dates: start: 20120424
  7. ACUPAN [Concomitant]
     Dosage: UNK
     Dates: start: 20120424
  8. ONDANSETRON [Concomitant]
     Dosage: UNK
     Dates: start: 20120424
  9. XYZAL [Concomitant]
  10. ATARAX [Concomitant]
     Dosage: UNK
     Dates: start: 20120423
  11. OMEPRAZOLE [Concomitant]
  12. ZANTAC [Concomitant]
     Dosage: UNK
     Dates: start: 20120423
  13. OXYCODONE HCL [Suspect]
     Indication: PAIN
     Dosage: UNK
     Route: 048
     Dates: start: 20120424
  14. PYOSTACINE [Concomitant]
     Dosage: UNK
     Dates: start: 20120424
  15. CELEBREX [Concomitant]
     Dosage: UNK
     Dates: start: 20120424
  16. ERYTHROMYCINE                      /00020901/ [Concomitant]
     Dosage: UNK
     Dates: start: 20120425
  17. ACETAMINOPHEN [Concomitant]
  18. TRAMADOL HYDROCHLORIDE [Concomitant]

REACTIONS (2)
  - ACUTE GENERALISED EXANTHEMATOUS PUSTULOSIS [None]
  - LIVER INJURY [None]
